FAERS Safety Report 12871733 (Version 1)
Quarter: 2016Q4

REPORT INFORMATION
  Report Type: Spontaneous
  Country: DK (occurrence: DK)
  Receive Date: 20161021
  Receipt Date: 20161021
  Transmission Date: 20170207
  Serious: Yes (Death, Hospitalization, Other)
  Sender: FDA-Public Use
  Company Number: DK-ALEMBIC PHARMACUETICALS LIMITED-2016SCAL000834

PATIENT

DRUGS (1)
  1. VENLAFAXINE HYDROCHLORIDE. [Suspect]
     Active Substance: VENLAFAXINE HYDROCHLORIDE
     Indication: PRODUCT USED FOR UNKNOWN INDICATION
     Dosage: 22 G, UNK

REACTIONS (7)
  - Suicide attempt [Fatal]
  - Cardiac failure [Fatal]
  - Cardiac arrest [Fatal]
  - Hepatic failure [Fatal]
  - Serotonin syndrome [Fatal]
  - Arrhythmia [Fatal]
  - Overdose [Fatal]
